FAERS Safety Report 10062568 (Version 1)
Quarter: 2014Q2

REPORT INFORMATION
  Report Type: Spontaneous
  Country: DK (occurrence: IT)
  Receive Date: 20140407
  Receipt Date: 20140407
  Transmission Date: 20141212
  Serious: Yes (Hospitalization)
  Sender: FDA-Public Use
  Company Number: IT-FRI-1000066196

PATIENT
  Age: 78 Year
  Sex: Female

DRUGS (1)
  1. ESCITALOPRAM ORAL SOLUTION [Suspect]
     Dosage: OVERDOSE: CIPRALEX 30 DROPS
     Route: 048
     Dates: start: 20131110, end: 20131111

REACTIONS (2)
  - Haemolysis [Recovering/Resolving]
  - Accidental overdose [Recovering/Resolving]
